FAERS Safety Report 17852173 (Version 2)
Quarter: 2020Q2

REPORT INFORMATION
  Report Type: Report from Study
  Country: US (occurrence: US)
  Receive Date: 20200602
  Receipt Date: 20200605
  Transmission Date: 20200714
  Serious: Yes (Death)
  Sender: FDA-Public Use
  Company Number: US-ROCHE-2611175

PATIENT
  Age: 67 Year
  Sex: Male
  Weight: 95.7 kg

DRUGS (22)
  1. TOCILIZUMAB. [Suspect]
     Active Substance: TOCILIZUMAB
     Indication: COVID-19 PNEUMONIA
     Dosage: MOST RECENT DOSE ON 22/APR/2020 AT 13:00: 200MG
     Route: 042
     Dates: start: 20200422
  2. DORZOLAMIDE [Concomitant]
     Active Substance: DORZOLAMIDE
     Indication: GLAUCOMA
     Dosage: DOSE- 1 OTHER
     Route: 065
     Dates: start: 20180907, end: 20200508
  3. CEFEPIME [Concomitant]
     Active Substance: CEFEPIME HYDROCHLORIDE
     Indication: PNEUMONIA
     Route: 065
     Dates: start: 20200430, end: 20200506
  4. LINEZOLID. [Concomitant]
     Active Substance: LINEZOLID
     Indication: PNEUMONIA
     Route: 065
     Dates: start: 20200430, end: 20200506
  5. FAMOTIDINE. [Concomitant]
     Active Substance: FAMOTIDINE
     Indication: GASTROINTESTINAL HAEMORRHAGE
     Route: 065
     Dates: start: 20200428, end: 20200508
  6. ALBUTEROL [SALBUTAMOL] [Concomitant]
     Active Substance: ALBUTEROL
     Indication: DYSPNOEA
     Dosage: 2 PUFF
     Route: 065
     Dates: start: 20200114, end: 20200508
  7. ASPIRIN [ACETYLSALICYLIC ACID] [Concomitant]
     Active Substance: ASPIRIN
     Indication: CORONARY ARTERY DISEASE
     Route: 065
     Dates: start: 20200114, end: 20200508
  8. BRIMONIDINE TARTRATE. [Concomitant]
     Active Substance: BRIMONIDINE TARTRATE
     Indication: GLAUCOMA
     Route: 065
     Dates: start: 20200114, end: 20200508
  9. CITALOPRAM [Concomitant]
     Active Substance: CITALOPRAM HYDROBROMIDE
     Indication: ANXIETY
     Route: 065
     Dates: start: 20200207, end: 20200508
  10. DIGOXIN. [Concomitant]
     Active Substance: DIGOXIN
     Indication: CARDIAC FAILURE CONGESTIVE
     Route: 065
     Dates: start: 20180725, end: 20200508
  11. MELATONIN [Concomitant]
     Active Substance: MELATONIN
     Indication: ANXIETY
     Route: 065
     Dates: start: 20180505, end: 20200508
  12. PREGABALIN. [Concomitant]
     Active Substance: PREGABALIN
     Indication: NEURALGIA
     Route: 065
     Dates: start: 20150130, end: 20200508
  13. CHOLECALCIFEROL [Concomitant]
     Active Substance: CHOLECALCIFEROL
     Indication: VITAMIN D DEFICIENCY
     Dosage: DOSE- 50 OTHER
     Route: 065
     Dates: start: 20200205, end: 20200508
  14. INSULIN [Concomitant]
     Active Substance: INSULIN NOS
     Indication: TYPE 2 DIABETES MELLITUS
     Dosage: 50 U (UNIT)
     Route: 065
     Dates: start: 20130703, end: 20200508
  15. HEPARIN [Concomitant]
     Active Substance: HEPARIN SODIUM
     Indication: THROMBOSIS PROPHYLAXIS
     Dosage: 500 U (UNIT)
     Route: 065
     Dates: start: 20200422, end: 20200508
  16. LATANOPROST. [Concomitant]
     Active Substance: LATANOPROST
     Indication: CATARACT
     Dosage: 1 OTHER
     Route: 065
     Dates: start: 20200428, end: 20200508
  17. POLYETHYLENE GLYCOL [MACROGOL] [Concomitant]
     Indication: CONSTIPATION PROPHYLAXIS
     Route: 065
     Dates: start: 20180515, end: 20200508
  18. ONDASETRON [ONDANSETRON] [Concomitant]
     Indication: VOMITING
     Dosage: DOSE- UNKNOWN
     Route: 065
     Dates: start: 20200501, end: 20200508
  19. ACETAMINOPHEN. [Concomitant]
     Active Substance: ACETAMINOPHEN
     Indication: PYREXIA
     Route: 065
     Dates: start: 20200417, end: 20200508
  20. DULAGLUTIDE. [Concomitant]
     Active Substance: DULAGLUTIDE
     Indication: TYPE 2 DIABETES MELLITUS
     Route: 065
     Dates: start: 20200106, end: 20200427
  21. ALPRAZOLAM. [Concomitant]
     Active Substance: ALPRAZOLAM
     Indication: ANXIETY
     Route: 065
     Dates: start: 20200207, end: 20200508
  22. IPRATROPIUM [Concomitant]
     Active Substance: IPRATROPIUM
     Indication: DYSPNOEA
     Dosage: DOSE- 1 AMPULE
     Route: 065
     Dates: start: 20180504, end: 20200508

REACTIONS (1)
  - Respiratory failure [Fatal]

NARRATIVE: CASE EVENT DATE: 20200508
